FAERS Safety Report 9863389 (Version 1)
Quarter: 2014Q1

REPORT INFORMATION
  Report Type: Spontaneous
  Country: GB (occurrence: GB)
  Receive Date: 20140203
  Receipt Date: 20140203
  Transmission Date: 20141002
  Serious: Yes (Other)
  Sender: FDA-Public Use
  Company Number: GB-ROXANE LABORATORIES, INC.-2014-RO-00118RO

PATIENT
  Age: 78 Year
  Sex: Male

DRUGS (4)
  1. AMLODIPINE [Suspect]
     Indication: HYPERTENSION
  2. ATENOLOL [Concomitant]
  3. SIMVASTATIN [Concomitant]
  4. TAFLUPROST [Concomitant]
     Indication: GLAUCOMA
     Route: 061

REACTIONS (1)
  - Pemphigoid [Recovered/Resolved]
